FAERS Safety Report 24195884 (Version 1)
Quarter: 2024Q3

REPORT INFORMATION
  Report Type: Spontaneous
  Country: JP (occurrence: JP)
  Receive Date: 20240809
  Receipt Date: 20240809
  Transmission Date: 20241016
  Serious: Yes (Other)
  Sender: GENMAB
  Company Number: JP-GENMAB-2024-02848

PATIENT
  Age: 88 Year
  Sex: Female

DRUGS (1)
  1. EPKINLY [Suspect]
     Active Substance: EPCORITAMAB-BYSP
     Indication: Diffuse large B-cell lymphoma
     Dosage: UNK, ADMINISTERED UNTIL THE THIRD ADMINISTRATION IN CYCLE 2
     Route: 065
     Dates: start: 2024

REACTIONS (4)
  - Pneumocystis jirovecii pneumonia [Unknown]
  - Cytokine release syndrome [Unknown]
  - Malaise [Unknown]
  - Cystitis [Unknown]

NARRATIVE: CASE EVENT DATE: 20240101
